FAERS Safety Report 10729826 (Version 1)
Quarter: 2015Q1

REPORT INFORMATION
  Report Type: Spontaneous
  Country: US (occurrence: None)
  Receive Date: 20150121
  Receipt Date: 20150121
  Transmission Date: 20150721
  Serious: No
  Sender: FDA-Public Use
  Company Number: None

PATIENT
  Age: 26 Year
  Sex: Male
  Weight: 68.04 kg

DRUGS (1)
  1. AMNESTEEM [Suspect]
     Active Substance: ISOTRETINOIN
     Indication: ACNE
     Dosage: TAKEN BY MOUTH
     Dates: start: 20150111, end: 20150116

REACTIONS (4)
  - Sensory disturbance [None]
  - Male orgasmic disorder [None]
  - Erectile dysfunction [None]
  - Tinnitus [None]

NARRATIVE: CASE EVENT DATE: 20150120
